FAERS Safety Report 4580800-8 (Version None)
Quarter: 2005Q1

REPORT INFORMATION
  Report Type: 
  Country: None (occurrence: None)
  Receive Date: 20050214
  Receipt Date: 20040604
  Transmission Date: 20050727
  Serious: No
  Sender: FDA-Public Use
  Company Number: US-GLAXOSMITHKLINE-A0513476A

PATIENT
  Sex: Female

DRUGS (6)
  1. LAMICTAL [Suspect]
     Indication: BIPOLAR DISORDER
     Dosage: 100MG TWICE PER DAY
     Route: 048
  2. ZYPREXA [Concomitant]
  3. LORAZEPAM [Concomitant]
  4. REMERON [Concomitant]
  5. PROPRANOLOL [Concomitant]
  6. CALCIUM GLUCONATE [Concomitant]

REACTIONS (1)
  - ECZEMA [None]
